FAERS Safety Report 11091137 (Version 1)
Quarter: 2015Q2

REPORT INFORMATION
  Report Type: Spontaneous
  Country: IT (occurrence: IT)
  Receive Date: 20150505
  Receipt Date: 20150505
  Transmission Date: 20150821
  Serious: Yes (Other)
  Sender: FDA-Public Use
  Company Number: IT-ACTAVIS-2015-09005

PATIENT
  Age: 66 Year
  Sex: Female

DRUGS (1)
  1. QUETIAPINE (UNKNOWN) [Suspect]
     Active Substance: QUETIAPINE
     Indication: AFFECTIVE DISORDER
     Dosage: 200 MG, DAILY
     Route: 065
     Dates: start: 20131031, end: 20140228

REACTIONS (5)
  - Nightmare [Unknown]
  - Circadian rhythm sleep disorder [Unknown]
  - Hearing impaired [Unknown]
  - Product substitution issue [Unknown]
  - Nervousness [Unknown]

NARRATIVE: CASE EVENT DATE: 20140131
